FAERS Safety Report 5602464-4 (Version None)
Quarter: 2008Q1

REPORT INFORMATION
  Report Type: 
  Country: None (occurrence: None)
  Receive Date: 20080125
  Receipt Date: 20080111
  Transmission Date: 20080703
  Serious: Yes (Other)
  Sender: FDA-Public Use
  Company Number: US-ELI_LILLY_AND_COMPANY-US200801002527

PATIENT
  Sex: Male
  Weight: 114.29 kg

DRUGS (9)
  1. CYMBALTA [Suspect]
     Dosage: UNK, UNK
     Dates: start: 20060101, end: 20060101
  2. EXENATIDE [Concomitant]
     Dosage: 5 IU, 2/D
     Route: 058
     Dates: start: 20050801, end: 20050901
  3. EXENATIDE [Concomitant]
     Dosage: 10 IU, 2/D
     Route: 058
     Dates: start: 20050901
  4. AMARYL [Concomitant]
     Dosage: 8 MG, DAILY (1/D)
     Route: 048
  5. METFORMIN HCL [Concomitant]
     Dosage: 1000 MG, DAILY (1/D)
     Route: 048
  6. NEURONTIN [Concomitant]
     Indication: NEUROPATHY PERIPHERAL
     Dosage: 600 MG, UNK
  7. ASPIRIN [Concomitant]
     Dosage: 81 MG, DAILY (1/D)
     Route: 048
  8. OMACOR [Concomitant]
     Indication: INTESTINAL FUNCTIONAL DISORDER
     Dosage: 1 G, UNK
  9. ICAPS [Concomitant]

REACTIONS (2)
  - FEELING COLD [None]
  - LOSS OF CONSCIOUSNESS [None]
